FAERS Safety Report 20229270 (Version 1)
Quarter: 2021Q4

REPORT INFORMATION
  Report Type: Spontaneous
  Country: US (occurrence: US)
  Receive Date: 20211225
  Receipt Date: 20211225
  Transmission Date: 20220303
  Serious: Yes (Death, Other)
  Sender: FDA-Public Use
  Company Number: US-TEVA-2021-US-1991766

PATIENT
  Sex: Male

DRUGS (9)
  1. FENTANYL [Suspect]
     Active Substance: FENTANYL
     Indication: Product used for unknown indication
     Route: 065
     Dates: start: 200001, end: 20050331
  2. ADDERALL [Suspect]
     Active Substance: AMPHETAMINE ASPARTATE\AMPHETAMINE SULFATE\DEXTROAMPHETAMINE SACCHARATE\DEXTROAMPHETAMINE SULFATE
     Route: 065
     Dates: start: 200001, end: 20050331
  3. OXYCODONE [Suspect]
     Active Substance: OXYCODONE
     Route: 065
     Dates: start: 200001, end: 20050331
  4. VALIUM [Suspect]
     Active Substance: DIAZEPAM
     Route: 065
     Dates: start: 200001, end: 20050331
  5. KLONOPIN [Suspect]
     Active Substance: CLONAZEPAM
     Route: 065
     Dates: start: 200001, end: 20050331
  6. CODEINE [Suspect]
     Active Substance: CODEINE
     Route: 065
     Dates: start: 200001, end: 20050331
  7. DEMEROL [Suspect]
     Active Substance: MEPERIDINE HYDROCHLORIDE
     Route: 065
     Dates: start: 200001, end: 20050331
  8. XANAX [Suspect]
     Active Substance: ALPRAZOLAM
     Route: 065
     Dates: start: 200001, end: 20050331
  9. VICODIN [Suspect]
     Active Substance: ACETAMINOPHEN\HYDROCODONE BITARTRATE
     Route: 065
     Dates: start: 200001, end: 20050331

REACTIONS (2)
  - Overdose [Fatal]
  - Drug dependence [Unknown]
